FAERS Safety Report 4905423-X (Version None)
Quarter: 2006Q1

REPORT INFORMATION
  Report Type: 
  Country: None (occurrence: None)
  Receive Date: 20060208
  Receipt Date: 20051031
  Transmission Date: 20060701
  Serious: Yes (Hospitalization)
  Sender: FDA-Public Use
  Company Number: US-MERCK-0511USA00083

PATIENT
  Age: 67 Year
  Sex: Male
  Weight: 105 kg

DRUGS (8)
  1. VIOXX [Suspect]
     Indication: ARTHRALGIA
     Route: 048
     Dates: start: 20000927, end: 20040901
  2. VIOXX [Suspect]
     Route: 065
  3. VIOXX [Suspect]
     Indication: PAIN IN EXTREMITY
     Route: 048
     Dates: start: 20000927, end: 20040901
  4. VIOXX [Suspect]
     Route: 065
  5. ASPIRIN [Concomitant]
     Indication: PROPHYLAXIS
     Route: 065
     Dates: start: 19990101
  6. TYLENOL [Concomitant]
     Route: 065
     Dates: start: 19990101
  7. NITRO-SPRAY [Concomitant]
     Route: 065
  8. ANTIVERT [Concomitant]
     Route: 065

REACTIONS (10)
  - ACUTE MYOCARDIAL INFARCTION [None]
  - BENIGN PROSTATIC HYPERPLASIA [None]
  - BLOOD CHOLESTEROL INCREASED [None]
  - DIABETES MELLITUS [None]
  - FALL [None]
  - GASTROOESOPHAGEAL REFLUX DISEASE [None]
  - HYPERTENSION [None]
  - OESOPHAGEAL SPASM [None]
  - POLYARTHRITIS [None]
  - RHEUMATOID ARTHRITIS [None]
